FAERS Safety Report 7747955-5 (Version None)
Quarter: 2011Q3

REPORT INFORMATION
  Report Type: 
  Country: None (occurrence: None)
  Receive Date: 20110913
  Receipt Date: 20110718
  Transmission Date: 20111222
  Serious: No
  Sender: FDA-Public Use
  Company Number: US-ALLERGAN-1109718US

PATIENT
  Age: 52 Year
  Sex: Female

DRUGS (2)
  1. LATISSE [Suspect]
     Dosage: 2 GTT, UNK
     Route: 061
     Dates: start: 20110717
  2. LATISSE [Suspect]
     Indication: GROWTH OF EYELASHES
     Dosage: 2 GTT, UNK
     Route: 061
     Dates: start: 20110301

REACTIONS (2)
  - DRUG ADMINISTERED AT INAPPROPRIATE SITE [None]
  - HAIR DISORDER [None]
